FAERS Safety Report 11799528 (Version 4)
Quarter: 2016Q2

REPORT INFORMATION
  Report Type: Spontaneous
  Country: AU (occurrence: AU)
  Receive Date: 20151203
  Receipt Date: 20160628
  Transmission Date: 20160815
  Serious: Yes (Hospitalization, Other)
  Sender: FDA-Public Use
  Company Number: PHHY2015AU155789

PATIENT
  Age: 54 Year
  Sex: Male

DRUGS (4)
  1. GLIVEC [Suspect]
     Active Substance: IMATINIB MESYLATE
     Indication: ACUTE LYMPHOCYTIC LEUKAEMIA
     Dosage: 600 MG, QD
     Route: 048
     Dates: start: 200806, end: 20091028
  2. DASATINIB [Suspect]
     Active Substance: DASATINIB
     Indication: ACUTE LYMPHOCYTIC LEUKAEMIA
     Dosage: 50 MG, BID
     Route: 048
     Dates: start: 20091028, end: 20151218
  3. LAMIVUDINE. [Suspect]
     Active Substance: LAMIVUDINE
     Indication: CHRONIC HEPATITIS B
     Dosage: 100 MG, QD
     Route: 048
     Dates: start: 200806
  4. NILOTINIB [Suspect]
     Active Substance: NILOTINIB
     Indication: ACUTE LYMPHOCYTIC LEUKAEMIA
     Dosage: 400 MG, BID
     Route: 048
     Dates: start: 20160317

REACTIONS (15)
  - Haemoglobin decreased [Unknown]
  - Drug resistance [Unknown]
  - Protein total increased [Unknown]
  - Blood calcium increased [Unknown]
  - Acute lymphocytic leukaemia recurrent [Recovered/Resolved]
  - Blood bicarbonate decreased [Unknown]
  - Chronic hepatitis B [Unknown]
  - Neutrophil count decreased [Unknown]
  - Malignant neoplasm progression [Recovering/Resolving]
  - Red cell distribution width increased [Unknown]
  - Electrocardiogram QT prolonged [Unknown]
  - Mean platelet volume decreased [Unknown]
  - Lymphocyte count increased [Unknown]
  - Acute lymphocytic leukaemia [Recovering/Resolving]
  - Drug hypersensitivity [Unknown]

NARRATIVE: CASE EVENT DATE: 20150825
